FAERS Safety Report 5428357-3 (Version None)
Quarter: 2007Q3

REPORT INFORMATION
  Report Type: 
  Country: None (occurrence: None)
  Receive Date: 20070824
  Receipt Date: 20070813
  Transmission Date: 20080115
  Serious: Yes (Hospitalization)
  Sender: FDA-Public Use
  Company Number: 2007BI013499

PATIENT
  Age: 38 Year
  Sex: Female

DRUGS (1)
  1. NATALIZUMAB [Suspect]
     Indication: MULTIPLE SCLEROSIS
     Dosage: 300 MG; QM; IV
     Route: 030
     Dates: start: 20061129

REACTIONS (3)
  - CONVULSION [None]
  - CYSTITIS [None]
  - URINARY TRACT INFECTION [None]
